FAERS Safety Report 18169955 (Version 3)
Quarter: 2020Q4

REPORT INFORMATION
  Report Type: Spontaneous
  Country: US (occurrence: US)
  Receive Date: 20200819
  Receipt Date: 20201221
  Transmission Date: 20210113
  Serious: Yes (Hospitalization)
  Sender: FDA-Public Use
  Company Number: US-GLAXOSMITHKLINE-US2020AMR164972

PATIENT
  Sex: Female

DRUGS (2)
  1. ZEJULA [Suspect]
     Active Substance: NIRAPARIB
     Indication: OVARIAN CANCER
     Dosage: 200 MG (100MG, 2 CAPSULES BY MOUTH)
     Route: 048
     Dates: start: 20200630
  2. ZEJULA [Suspect]
     Active Substance: NIRAPARIB
     Dosage: 200 MG

REACTIONS (2)
  - Product dose omission issue [Unknown]
  - Ankle fracture [Unknown]
